FAERS Safety Report 8345929-7 (Version None)
Quarter: 2012Q2

REPORT INFORMATION
  Report Type: 
  Country: None (occurrence: None)
  Receive Date: 20120507
  Receipt Date: 20120425
  Transmission Date: 20120825
  Serious: Yes (Other)
  Sender: FDA-Public Use
  Company Number: 7129048

PATIENT
  Age: 3 Year
  Sex: Female

DRUGS (1)
  1. LEVOTHYROXINE SODIUM [Suspect]
     Indication: ACCIDENTAL DRUG INTAKE BY CHILD
     Dosage: (1 DF, 1 TIME), ORAL
     Route: 048
     Dates: start: 20120425

REACTIONS (1)
  - ACCIDENTAL DRUG INTAKE BY CHILD [None]
